FAERS Safety Report 21396514 (Version 3)
Quarter: 2022Q4

REPORT INFORMATION
  Report Type: Report from Study
  Country: AU (occurrence: None)
  Receive Date: 20220930
  Receipt Date: 20221020
  Transmission Date: 20230113
  Serious: Yes (Hospitalization)
  Sender: FDA-Public Use
  Company Number: AU-ROCHE-3188504

PATIENT
  Age: 57 Year
  Sex: Male
  Weight: 72 kg

DRUGS (5)
  1. VENETOCLAX [Suspect]
     Active Substance: VENETOCLAX
     Indication: Chronic lymphocytic leukaemia
     Dosage: ON 15/SEP/2022, HE RECEIVED LAST DOSE OF VENETOCLAX PRIOR TO SAE.
     Route: 065
     Dates: start: 20220707, end: 20220915
  2. RITUXIMAB [Suspect]
     Active Substance: RITUXIMAB
     Indication: Chronic lymphocytic leukaemia
     Dosage: ON 08/SEP/2022, HE RECEIVED LAST DOSE OF RITUXIMAB PRIOR TO SAE.
     Route: 065
     Dates: start: 20220811, end: 20220908
  3. FILGRASTIM [Concomitant]
     Active Substance: FILGRASTIM
     Indication: Neutropenia
     Route: 065
     Dates: start: 20220913
  4. DOXYCYCLINE [Concomitant]
     Active Substance: DOXYCYCLINE
     Indication: Lower respiratory tract infection
     Route: 065
     Dates: start: 20220825
  5. CEFUROXIME [Concomitant]
     Active Substance: CEFUROXIME
     Indication: Lower respiratory tract infection
     Route: 065
     Dates: start: 20220805, end: 20220824

REACTIONS (1)
  - Septic shock [Recovered/Resolved]

NARRATIVE: CASE EVENT DATE: 20220915
